FAERS Safety Report 7528046-5 (Version None)
Quarter: 2011Q2

REPORT INFORMATION
  Report Type: 
  Country: None (occurrence: None)
  Receive Date: 20110607
  Receipt Date: 20110602
  Transmission Date: 20111010
  Serious: Yes (Other)
  Sender: FDA-Public Use
  Company Number: PT-BRISTOL-MYERS SQUIBB COMPANY-15747314

PATIENT
  Sex: Male

DRUGS (8)
  1. INTERFERON ALFA [Concomitant]
  2. NIMESULIDE [Concomitant]
     Dates: start: 20110415
  3. REYATAZ [Suspect]
     Indication: HIV INFECTION
     Route: 048
     Dates: start: 20090123
  4. TRUVADA [Suspect]
     Indication: HIV INFECTION
     Dates: start: 20090123
  5. VALPROATE SODIUM [Concomitant]
     Dates: start: 20110402
  6. RITONAVIR [Suspect]
     Indication: HIV INFECTION
     Dates: start: 20090123
  7. RIBAVIRIN [Concomitant]
     Dates: start: 20100301
  8. BIOFLAVONOID [Concomitant]
     Dates: start: 20110421

REACTIONS (2)
  - CHOLECYSTITIS ACUTE [None]
  - HEPATITIS C [None]
